FAERS Safety Report 7357458-8 (Version None)
Quarter: 2011Q1

REPORT INFORMATION
  Report Type: 
  Country: None (occurrence: None)
  Receive Date: 20110317
  Receipt Date: 20110304
  Transmission Date: 20110831
  Serious: Yes (Hospitalization, Other)
  Sender: FDA-Public Use
  Company Number: US-BAYER-201040904NA

PATIENT
  Sex: Female
  Weight: 93 kg

DRUGS (2)
  1. HYDROCODONE/ACETAMINOPHEN [Concomitant]
     Dosage: UNK
     Dates: start: 20071219
  2. YASMIN [Suspect]
     Indication: ORAL CONTRACEPTION
     Dosage: UNK
     Route: 048
     Dates: start: 20050101, end: 20080601

REACTIONS (5)
  - NAUSEA [None]
  - CHOLELITHIASIS [None]
  - CHOLECYSTITIS [None]
  - VOMITING [None]
  - ABDOMINAL PAIN UPPER [None]
